FAERS Safety Report 16739893 (Version 2)
Quarter: 2019Q3

REPORT INFORMATION
  Report Type: Spontaneous
  Country: US (occurrence: US)
  Receive Date: 20190826
  Receipt Date: 20190904
  Transmission Date: 20191005
  Serious: No
  Sender: FDA-Public Use
  Company Number: US-ALNYLAM PHARMACEUTICALS, INC.-ALN-2019-000569

PATIENT
  Sex: Female

DRUGS (2)
  1. DIPHENHYDRAMINE. [Suspect]
     Active Substance: DIPHENHYDRAMINE
     Indication: PROPHYLAXIS
     Dosage: UNK
  2. ONPATTRO [Suspect]
     Active Substance: PATISIRAN SODIUM
     Indication: HEREDITARY NEUROPATHIC AMYLOIDOSIS
     Dosage: UNK
     Route: 042
     Dates: start: 20190725

REACTIONS (8)
  - Asthenia [Unknown]
  - Fatigue [Unknown]
  - Restlessness [Unknown]
  - Muscle twitching [Unknown]
  - Pyrexia [Unknown]
  - Infusion related reaction [Unknown]
  - Discomfort [Unknown]
  - Dyspnoea [Unknown]
